FAERS Safety Report 15971265 (Version 1)
Quarter: 2019Q1

REPORT INFORMATION
  Report Type: Spontaneous
  Country: US (occurrence: US)
  Receive Date: 20190215
  Receipt Date: 20190215
  Transmission Date: 20190418
  Serious: Yes (Other)
  Sender: FDA-Public Use
  Company Number: PHEH2019US006965

PATIENT
  Age: 66 Year
  Sex: Male

DRUGS (1)
  1. TASIGNA [Suspect]
     Active Substance: NILOTINIB
     Indication: CHRONIC MYELOID LEUKAEMIA
     Dosage: 150 MG, BID
     Route: 048

REACTIONS (31)
  - Cardiac failure congestive [Unknown]
  - Chest pain [Unknown]
  - Cough [Unknown]
  - Hypertension [Unknown]
  - Migraine [Unknown]
  - Hypercholesterolaemia [Unknown]
  - Nephrolithiasis [Unknown]
  - Type 2 diabetes mellitus [Unknown]
  - Peripheral artery occlusion [Unknown]
  - Pneumonia [Unknown]
  - Goitre [Unknown]
  - Iron deficiency anaemia [Unknown]
  - Back pain [Unknown]
  - Essential hypertension [Unknown]
  - Panic attack [Unknown]
  - Diabetes mellitus [Unknown]
  - Ulcer haemorrhage [Unknown]
  - Cardiac failure [Unknown]
  - Coronary artery disease [Unknown]
  - Myalgia [Unknown]
  - Anxiety [Unknown]
  - Insomnia [Unknown]
  - Facial paralysis [Unknown]
  - Peripheral vascular disorder [Unknown]
  - Sinus bradycardia [Unknown]
  - Arthralgia [Unknown]
  - Deep vein thrombosis [Unknown]
  - Atrioventricular block [Unknown]
  - Headache [Unknown]
  - Hyperlipidaemia [Unknown]
  - Gastrooesophageal reflux disease [Unknown]

NARRATIVE: CASE EVENT DATE: 201405
